FAERS Safety Report 25748235 (Version 1)
Quarter: 2025Q3

REPORT INFORMATION
  Report Type: Report from Study
  Country: US (occurrence: US)
  Receive Date: 20250902
  Receipt Date: 20250902
  Transmission Date: 20251020
  Serious: Yes (Other)
  Sender: JOHNSON AND JOHNSON
  Company Number: US-JNJFOC-20250835585

PATIENT

DRUGS (2)
  1. SPRAVATO [Suspect]
     Active Substance: ESKETAMINE
     Indication: Product used for unknown indication
     Route: 045
  2. SPRAVATO [Suspect]
     Active Substance: ESKETAMINE
     Route: 045

REACTIONS (2)
  - Suicidal ideation [Unknown]
  - Depression [Unknown]
